FAERS Safety Report 16199608 (Version 1)
Quarter: 2019Q2

REPORT INFORMATION
  Report Type: Spontaneous
  Country: DE (occurrence: DE)
  Receive Date: 20190415
  Receipt Date: 20190415
  Transmission Date: 20190711
  Serious: Yes (Other)
  Sender: FDA-Public Use
  Company Number: PHHY2019DE081401

PATIENT
  Sex: Male

DRUGS (3)
  1. PREDNISOLONE. [Concomitant]
     Active Substance: PREDNISOLONE
     Indication: PRODUCT USED FOR UNKNOWN INDICATION
     Dosage: UNK
     Route: 065
  2. ATORVASTATIN [Suspect]
     Active Substance: ATORVASTATIN
     Dosage: UNK
     Route: 065
     Dates: start: 20190219, end: 20190320
  3. ATORVASTATIN [Suspect]
     Active Substance: ATORVASTATIN
     Indication: BLOOD CHOLESTEROL INCREASED
     Dosage: UNK
     Route: 065
     Dates: end: 20181219

REACTIONS (8)
  - Pain in extremity [Unknown]
  - Muscle injury [Unknown]
  - Tendon injury [Unknown]
  - Myalgia [Unknown]
  - Contusion [Unknown]
  - Tendon pain [Unknown]
  - Tendonitis [Unknown]
  - Bursitis [Unknown]

NARRATIVE: CASE EVENT DATE: 201812
